FAERS Safety Report 11694135 (Version 1)
Quarter: 2015Q4

REPORT INFORMATION
  Report Type: Spontaneous
  Country: US (occurrence: US)
  Receive Date: 20151103
  Receipt Date: 20151103
  Transmission Date: 20160304
  Serious: No
  Sender: FDA-Public Use
  Company Number: US-BAYER-2015-446740

PATIENT

DRUGS (1)
  1. DESONATE [Suspect]
     Active Substance: DESONIDE
     Indication: ROSACEA

REACTIONS (2)
  - Drug ineffective [None]
  - Product use issue [None]
